FAERS Safety Report 6657451-4 (Version None)
Quarter: 2010Q1

REPORT INFORMATION
  Report Type: 
  Country: None (occurrence: None)
  Receive Date: 20100330
  Receipt Date: 20100318
  Transmission Date: 20100710
  Serious: Yes (Other)
  Sender: FDA-Public Use
  Company Number: US-PFIZER INC-2010014883

PATIENT
  Sex: Male

DRUGS (2)
  1. SUTENT [Suspect]
     Indication: METASTATIC RENAL CELL CARCINOMA
     Dosage: 3 X12.5 MG, DAILY, 4 WEEKS ON/2WEEKS OFF
     Route: 048
     Dates: start: 20091001
  2. SUTENT [Suspect]
     Dosage: 50 MG, 1X/DAY, 4 WEEKS ON/2WEEKS OFF

REACTIONS (2)
  - BLOOD PRESSURE INCREASED [None]
  - CHEST PAIN [None]
